FAERS Safety Report 6996970-8 (Version None)
Quarter: 2010Q3

REPORT INFORMATION
  Report Type: 
  Country: None (occurrence: None)
  Receive Date: 20100918
  Receipt Date: 20090831
  Transmission Date: 20110219
  Serious: No
  Sender: FDA-Public Use
  Company Number: US-WYE-H10775509

PATIENT
  Age: 55 Year
  Sex: Male
  Weight: 79 kg

DRUGS (5)
  1. PRISTIQ [Suspect]
     Indication: DEPRESSION
     Route: 048
     Dates: start: 20090822
  2. BENZATROPINE [Concomitant]
  3. CLOZARIL [Concomitant]
  4. DEPAKOTE [Concomitant]
  5. NEXIUM [Concomitant]

REACTIONS (5)
  - DECREASED APPETITE [None]
  - GASTROENTERITIS VIRAL [None]
  - NAUSEA [None]
  - SOMNOLENCE [None]
  - VOMITING [None]
